FAERS Safety Report 4982386-2 (Version None)
Quarter: 2006Q2

REPORT INFORMATION
  Report Type: 
  Country: None (occurrence: None)
  Receive Date: 20060424
  Receipt Date: 20060424
  Transmission Date: 20061013
  Serious: Yes (Hospitalization)
  Sender: FDA-Public Use
  Company Number: None

PATIENT
  Sex: Female
  Weight: 72.5755 kg

DRUGS (2)
  1. FELDENE [Suspect]
     Indication: ARTHRITIS
     Dosage: 20 MG QD PO
     Route: 048
     Dates: start: 19900101
  2. LODINE [Suspect]
     Indication: ARTHRITIS
     Dosage: 400 MG QD PO
     Route: 048
     Dates: start: 19900101

REACTIONS (2)
  - ABDOMINAL DISCOMFORT [None]
  - ULCER HAEMORRHAGE [None]
